FAERS Safety Report 21000057 (Version 1)
Quarter: 2022Q2

REPORT INFORMATION
  Report Type: Spontaneous
  Country: AU (occurrence: AU)
  Receive Date: 20220623
  Receipt Date: 20220623
  Transmission Date: 20220721
  Serious: Yes (Other)
  Sender: FDA-Public Use
  Company Number: AU-BAXTER-2022BAX013118

PATIENT
  Age: 76 Year
  Sex: Male

DRUGS (12)
  1. DOXORUBICIN [Suspect]
     Active Substance: DOXORUBICIN
     Indication: Testis cancer
     Dosage: 4 CYCLES OF RCHOP REGIMEN
     Route: 065
     Dates: start: 202112, end: 202204
  2. DOXORUBICIN [Suspect]
     Active Substance: DOXORUBICIN
     Indication: Diffuse large B-cell lymphoma
     Dosage: 2 CYCLES OF HYPER CVAD REGIMEN B ARM
     Route: 065
     Dates: start: 202112, end: 202204
  3. CYCLOPHOSPHAMIDE [Suspect]
     Active Substance: CYCLOPHOSPHAMIDE
     Indication: Testis cancer
     Dosage: 4 CYCLES OF RCHOP REGIMEN
     Route: 065
     Dates: start: 202112, end: 202204
  4. CYCLOPHOSPHAMIDE [Suspect]
     Active Substance: CYCLOPHOSPHAMIDE
     Indication: Diffuse large B-cell lymphoma
     Dosage: 2 CYCLES OF HYPER CVAD REGIMEN B ARM
     Route: 065
     Dates: start: 202112, end: 202204
  5. RITUXIMAB [Suspect]
     Active Substance: RITUXIMAB
     Indication: Testis cancer
     Dosage: 4 CYCLES OF RCHOP REGIMEN
     Route: 065
     Dates: start: 202112, end: 202204
  6. RITUXIMAB [Suspect]
     Active Substance: RITUXIMAB
     Indication: Diffuse large B-cell lymphoma
  7. VINCRISTINE [Suspect]
     Active Substance: VINCRISTINE
     Indication: Testis cancer
     Dosage: 4 CYCLES OF RCHOP REGIMEN
     Route: 065
     Dates: start: 202112, end: 202204
  8. VINCRISTINE [Suspect]
     Active Substance: VINCRISTINE
     Indication: Diffuse large B-cell lymphoma
     Dosage: 2 CYCLES OF HYPER CVAD REGIMEN B ARM
     Route: 065
     Dates: start: 202112, end: 202204
  9. PREDNISONE [Suspect]
     Active Substance: PREDNISONE
     Indication: Testis cancer
     Dosage: 4 CYCLE OF RCHOP REGIMEN
     Route: 065
     Dates: start: 202112, end: 202204
  10. PREDNISONE [Suspect]
     Active Substance: PREDNISONE
     Indication: Diffuse large B-cell lymphoma
  11. DEXAMETHASONE [Suspect]
     Active Substance: DEXAMETHASONE
     Indication: Testis cancer
     Dosage: 2 CYCLES OF HYPER CVAD REGIMEN B ARM
     Route: 065
     Dates: start: 202112, end: 202204
  12. DEXAMETHASONE [Suspect]
     Active Substance: DEXAMETHASONE
     Indication: Diffuse large B-cell lymphoma

REACTIONS (3)
  - Metastases to meninges [Unknown]
  - Disease recurrence [Unknown]
  - Central nervous system lymphoma [Unknown]

NARRATIVE: CASE EVENT DATE: 20220617
